FAERS Safety Report 7076182-2 (Version None)
Quarter: 2010Q4

REPORT INFORMATION
  Report Type: 
  Country: None (occurrence: None)
  Receive Date: 20101101
  Receipt Date: 20101015
  Transmission Date: 20110411
  Serious: Yes (Hospitalization, Other)
  Sender: FDA-Public Use
  Company Number: US-BAYER-200937504NA

PATIENT
  Age: 32 Year
  Sex: Female
  Weight: 84 kg

DRUGS (4)
  1. YAZ [Suspect]
     Route: 048
     Dates: start: 20080301, end: 20080501
  2. YASMIN [Suspect]
     Route: 048
  3. IBUPROFEN [Concomitant]
  4. NAPROSYN [Concomitant]

REACTIONS (1)
  - THROMBOSIS [None]
